FAERS Safety Report 6338063-9 (Version None)
Quarter: 2009Q3

REPORT INFORMATION
  Report Type: 
  Country: None (occurrence: None)
  Receive Date: 20090902
  Receipt Date: 20090824
  Transmission Date: 20100115
  Serious: Yes (Hospitalization, Other)
  Sender: FDA-Public Use
  Company Number: PHHY2009GB31881

PATIENT
  Sex: Female

DRUGS (2)
  1. CLOZARIL [Suspect]
     Indication: SCHIZOPHRENIA
     Dosage: 3 TABLETS OF 25 MG MANE AND 2 TABLETS OF 100 MG PLUS 2 TABLETS OF 25 MG AT BEDTIME
     Route: 048
     Dates: start: 20020412
  2. CLOZARIL [Suspect]
     Dosage: 2 TABLETS OF 25 MG AT BREAKFAST AND 100 MG PLUS 25 MG AT BEDTIME
     Dates: start: 20090818

REACTIONS (11)
  - BRUXISM [None]
  - CEREBRAL ISCHAEMIA [None]
  - CHRONIC OBSTRUCTIVE PULMONARY DISEASE [None]
  - EUPHORIC MOOD [None]
  - GAIT DISTURBANCE [None]
  - HYPOKINESIA [None]
  - INAPPROPRIATE AFFECT [None]
  - LOGORRHOEA [None]
  - LOSS OF CONSCIOUSNESS [None]
  - LOWER RESPIRATORY TRACT INFECTION [None]
  - SOMNOLENCE [None]
